FAERS Safety Report 5386407-7 (Version None)
Quarter: 2007Q3

REPORT INFORMATION
  Report Type: 
  Country: None (occurrence: None)
  Receive Date: 20070710
  Receipt Date: 20070627
  Transmission Date: 20080115
  Serious: Yes (Other)
  Sender: FDA-Public Use
  Company Number: 100#08#2007-02394

PATIENT
  Age: 26 Year
  Sex: Male

DRUGS (1)
  1. CIPROFLOXACIN [Suspect]
     Indication: DIARRHOEA
     Dosage: 500 MG TWICE DAILY --

REACTIONS (3)
  - HEPATOCELLULAR DAMAGE [None]
  - JAUNDICE CHOLESTATIC [None]
  - RASH [None]
